FAERS Safety Report 25896415 (Version 2)
Quarter: 2025Q4

REPORT INFORMATION
  Report Type: Report from Study
  Country: AR (occurrence: AR)
  Receive Date: 20251008
  Receipt Date: 20251021
  Transmission Date: 20260117
  Serious: Yes (Other)
  Sender: NOVARTIS
  Company Number: AR-002147023-NVSC2025AR156164

PATIENT
  Age: 37 Year
  Sex: Female

DRUGS (3)
  1. KESIMPTA [Suspect]
     Active Substance: OFATUMUMAB
     Indication: Multiple sclerosis
     Dosage: UNK
     Route: 065
     Dates: start: 20230331
  2. KESIMPTA [Suspect]
     Active Substance: OFATUMUMAB
     Dosage: UNK, QMO (20/0.4 MILLIGRAM PER MILLILITRE)
     Route: 030
     Dates: end: 202508
  3. KESIMPTA [Suspect]
     Active Substance: OFATUMUMAB
     Dosage: UNK, QMO (20/0.4 MILLIGRAM PER MILLILITRE)
     Route: 030
     Dates: start: 202509

REACTIONS (12)
  - Pneumonia [Unknown]
  - Influenza like illness [Recovered/Resolved]
  - Oropharyngeal pain [Recovered/Resolved]
  - Sinusitis [Unknown]
  - Influenza [Unknown]
  - Rhinorrhoea [Unknown]
  - Odynophagia [Unknown]
  - Headache [Unknown]
  - Myalgia [Unknown]
  - Pharyngitis [Unknown]
  - Pyrexia [Unknown]
  - Incorrect route of product administration [Unknown]

NARRATIVE: CASE EVENT DATE: 20250728
